FAERS Safety Report 20621751 (Version 1)
Quarter: 2022Q1

REPORT INFORMATION
  Report Type: Spontaneous
  Country: RU (occurrence: RU)
  Receive Date: 20220322
  Receipt Date: 20220322
  Transmission Date: 20220423
  Serious: Yes (Life-Threatening, Hospitalization, Other)
  Sender: FDA-Public Use
  Company Number: RU-ABBVIE-22K-251-4325491-00

PATIENT
  Age: 74 Year
  Sex: Female
  Weight: 51.9 kg

DRUGS (10)
  1. VALPROIC ACID [Suspect]
     Active Substance: VALPROIC ACID
     Indication: Subdural haematoma
     Route: 048
     Dates: start: 20200702, end: 20200714
  2. DEXALGIN [Concomitant]
     Indication: Product used for unknown indication
     Dates: start: 20200709, end: 20200715
  3. CEREBROLYSIN [Concomitant]
     Active Substance: CEREBROLYSIN
     Indication: Product used for unknown indication
     Dates: start: 20200709
  4. BISOPROLOL FUMARATE [Concomitant]
     Active Substance: BISOPROLOL FUMARATE
     Indication: Product used for unknown indication
  5. AKATINOL MEMANTINE [Concomitant]
     Indication: Product used for unknown indication
  6. ACETAZOLAMIDE [Concomitant]
     Active Substance: ACETAZOLAMIDE
     Indication: Product used for unknown indication
     Dates: start: 20200707, end: 20200715
  7. ELIQUIS [Concomitant]
     Active Substance: APIXABAN
     Indication: Product used for unknown indication
  8. AMLODIPINE BESYLATE [Concomitant]
     Active Substance: AMLODIPINE BESYLATE
     Indication: Product used for unknown indication
  9. LEVOTHYROXINE [Concomitant]
     Active Substance: LEVOTHYROXINE
     Indication: Product used for unknown indication
  10. FOLIC ACID [Concomitant]
     Active Substance: FOLIC ACID
     Indication: Product used for unknown indication
     Dates: start: 20200707

REACTIONS (2)
  - Pancreatitis acute [Recovering/Resolving]
  - Product use in unapproved indication [Unknown]

NARRATIVE: CASE EVENT DATE: 20200702
